FAERS Safety Report 8124696-6 (Version None)
Quarter: 2012Q1

REPORT INFORMATION
  Report Type: 
  Country: None (occurrence: None)
  Receive Date: 20120209
  Receipt Date: 20120203
  Transmission Date: 20120608
  Serious: No
  Sender: FDA-Public Use
  Company Number: US-BAYER-2012-012712

PATIENT

DRUGS (2)
  1. ALEVE (CAPLET) [Suspect]
     Indication: HEADACHE
     Route: 048
  2. SINUS PILLS [Concomitant]
     Dosage: UNK

REACTIONS (1)
  - HEADACHE [None]
